FAERS Safety Report 18285958 (Version 1)
Quarter: 2020Q3

REPORT INFORMATION
  Report Type: Spontaneous
  Country: US (occurrence: US)
  Receive Date: 20200919
  Receipt Date: 20200919
  Transmission Date: 20201103
  Serious: Yes (Hospitalization)
  Sender: FDA-Public Use
  Company Number: US-MICRO LABS LIMITED-ML2020-02737

PATIENT
  Age: 16 Year
  Sex: Female

DRUGS (10)
  1. MELATONIN [Suspect]
     Active Substance: MELATONIN
     Dosage: INGESTED 20, 9 MG MELATONIN TABLETS TOTAL OF 180 MG
  2. METHYLPHENIDATE. [Suspect]
     Active Substance: METHYLPHENIDATE
     Indication: ATTENTION DEFICIT HYPERACTIVITY DISORDER
     Dosage: 17 HOURS BEFORE ARRIVAL.
  3. DEXTRORPHAN [Suspect]
     Active Substance: DEXTRORPHAN
  4. CETIRIZINE [Suspect]
     Active Substance: CETIRIZINE HYDROCHLORIDE
  5. TRIMETHOPRIM. [Suspect]
     Active Substance: TRIMETHOPRIM
  6. HYDROXYZINE [Suspect]
     Active Substance: HYDROXYZINE HYDROCHLORIDE
  7. DIPHENHYDRAMINE HYDROCHLORIDE. [Suspect]
     Active Substance: DIPHENHYDRAMINE HYDROCHLORIDE
  8. GUANFACINE. [Suspect]
     Active Substance: GUANFACINE
     Indication: ATTENTION DEFICIT HYPERACTIVITY DISORDER
     Dosage: 7 HOURS BEFORE ARRIVAL
  9. FLUOXETINE [Suspect]
     Active Substance: FLUOXETINE HYDROCHLORIDE
  10. DEXTROMETHORPHAN [Suspect]
     Active Substance: DEXTROMETHORPHAN

REACTIONS (7)
  - Orthostatic hypotension [Recovered/Resolved]
  - Hyporesponsive to stimuli [Unknown]
  - Vision blurred [Unknown]
  - Leukocytosis [Unknown]
  - Drug interaction [Unknown]
  - Paraesthesia [Unknown]
  - Dizziness [Unknown]
